FAERS Safety Report 6534877-0 (Version None)
Quarter: 2010Q1

REPORT INFORMATION
  Report Type: 
  Country: None (occurrence: None)
  Receive Date: 20100112
  Receipt Date: 20100104
  Transmission Date: 20100710
  Serious: Yes (Death)
  Sender: FDA-Public Use
  Company Number: US-PFIZER INC-2010001518

PATIENT
  Age: 58 Year
  Sex: Male

DRUGS (4)
  1. ALPRAZOLAM [Suspect]
  2. CITALOPRAM [Suspect]
     Dosage: UNK
  3. ZOLPIDEM [Suspect]
  4. ETHANOL [Suspect]

REACTIONS (1)
  - COMPLETED SUICIDE [None]
